FAERS Safety Report 4646346-3 (Version None)
Quarter: 2005Q2

REPORT INFORMATION
  Report Type: 
  Country: None (occurrence: None)
  Receive Date: 20050425
  Receipt Date: 20050418
  Transmission Date: 20051028
  Serious: Yes (Hospitalization)
  Sender: FDA-Public Use
  Company Number: 004611

PATIENT
  Age: 44 Year
  Sex: Female
  Weight: 63.9 kg

DRUGS (1)
  1. SEASONALE [Suspect]
     Indication: UTERINE LEIOMYOMA
     Dosage: 1.00  TABLET, QD, ORAL
     Route: 048
     Dates: start: 20050101, end: 20050315

REACTIONS (2)
  - ANAEMIA [None]
  - MENORRHAGIA [None]
